FAERS Safety Report 8716734 (Version 2)
Quarter: 2012Q4

REPORT INFORMATION
  Report Type: 
  Country: US (occurrence: US)
  Receive Date: 20120810
  Receipt Date: 20120903
  Transmission Date: 20130627
  Serious: No
  Sender: FDA-Public Use
  Company Number: US-PFIZER INC-2012193148

PATIENT
  Age: 65 Year
  Sex: Female
  Weight: 90.25 kg

DRUGS (6)
  1. SUTENT [Suspect]
     Indication: RENAL CELL CARCINOMA
     Dosage: 50 mg, cyclic
     Dates: start: 20120801
  2. LISINOPRIL [Concomitant]
     Dosage: 20 mg, UNK
  3. AMBIEN [Concomitant]
  4. HYDROCODONE WITH TYLENOL [Concomitant]
     Dosage: 5/325, as needed
  5. LEVOTHYROXINE [Concomitant]
     Dosage: 125 ug, UNK
  6. CITALOPRAM [Concomitant]
     Dosage: 40 mg, UNK

REACTIONS (2)
  - Diarrhoea [Unknown]
  - Dysgeusia [Unknown]
